FAERS Safety Report 12395819 (Version 1)
Quarter: 2016Q2

REPORT INFORMATION
  Report Type: Spontaneous
  Country: US (occurrence: US)
  Receive Date: 20160523
  Receipt Date: 20160523
  Transmission Date: 20160815
  Serious: Yes (Death)
  Sender: FDA-Public Use
  Company Number: US-HAEMONETICS CORP-1052673

PATIENT
  Age: 26 Year
  Sex: Female
  Weight: 124.09 kg

DRUGS (1)
  1. HAEMONETICS ANTICOAGULANT SODIUM CITRATE [Suspect]
     Active Substance: TRISODIUM CITRATE DIHYDRATE
     Indication: ANTICOAGULANT THERAPY
     Route: 042
     Dates: start: 20160418, end: 20160418

REACTIONS (1)
  - Death [Fatal]

NARRATIVE: CASE EVENT DATE: 20160419
